FAERS Safety Report 12648061 (Version 1)
Quarter: 2016Q3

REPORT INFORMATION
  Report Type: Spontaneous
  Country: US (occurrence: None)
  Receive Date: 20160811
  Receipt Date: 20160811
  Transmission Date: 20161109
  Serious: Yes (Death)
  Sender: FDA-Public Use
  Company Number: None

PATIENT
  Age: 63 Year
  Sex: Male

DRUGS (2)
  1. TACROLIMUS 0.5MG [Suspect]
     Active Substance: TACROLIMUS
     Indication: LUNG TRANSPLANT
     Dosage: 0.5MG SIX DAYS PER WEEK ORAL
     Route: 048
     Dates: start: 20151214
  2. SIROLIMUS 0.5MG [Suspect]
     Active Substance: SIROLIMUS
     Indication: LUNG TRANSPLANT
     Route: 048
     Dates: start: 20160128

REACTIONS (1)
  - Death [None]
